FAERS Safety Report 24372766 (Version 1)
Quarter: 2024Q3

REPORT INFORMATION
  Report Type: Spontaneous
  Country: US (occurrence: US)
  Receive Date: 20240927
  Receipt Date: 20240927
  Transmission Date: 20241017
  Serious: No
  Sender: Thea Pharma
  Company Number: US-THEA-2024001870

PATIENT
  Sex: Female

DRUGS (1)
  1. IYUZEH [Suspect]
     Active Substance: LATANOPROST
     Indication: Intraocular pressure increased
     Route: 047

REACTIONS (1)
  - Drug ineffective [Unknown]
